FAERS Safety Report 16341047 (Version 5)
Quarter: 2022Q3

REPORT INFORMATION
  Report Type: Spontaneous
  Country: GB (occurrence: GB)
  Receive Date: 20190522
  Receipt Date: 20220804
  Transmission Date: 20221027
  Serious: Yes (Hospitalization, Other)
  Sender: FDA-Public Use
  Company Number: None

PATIENT
  Age: 21 Year
  Sex: Female

DRUGS (98)
  1. DOMPERIDONE [Suspect]
     Active Substance: DOMPERIDONE
     Indication: Product used for unknown indication
     Dosage: 10 MG UP TO THREE TIMES A DAY; DOSAGE FORM UNSPECIFIED
     Route: 048
  2. DOMPERIDONE [Suspect]
     Active Substance: DOMPERIDONE
     Dosage: 30 MILLIGRAM, QD (10 MILLIGRAM, UP TO THREE TIMES A DAY) (FILM-COATED TABLET )
     Route: 048
  3. DOMPERIDONE [Suspect]
     Active Substance: DOMPERIDONE
     Dosage: 30 MILLIGRAM PER DAY
     Route: 048
  4. DOMPERIDONE [Suspect]
     Active Substance: DOMPERIDONE
     Dosage: 32 DOSAGE FORM, QD, PER DAY, TABLET
     Route: 048
  5. TRAMADOL [Suspect]
     Active Substance: TRAMADOL
     Indication: Abdominal pain
     Dosage: 50 MG (3 IN 1 DAYS 50 MG, 3/DAY)
     Route: 048
     Dates: start: 200904, end: 201011
  6. TRAMADOL [Suspect]
     Active Substance: TRAMADOL
     Dosage: 100 MG, QID, DOSAGE FORM UNSPECIFIED (100 MG, 4/DAY)
     Route: 048
     Dates: start: 200910, end: 201011
  7. TRAMADOL [Suspect]
     Active Substance: TRAMADOL
     Dosage: 150 MILLIGRAM, QD
     Route: 048
     Dates: start: 200904, end: 200909
  8. TRAMADOL [Suspect]
     Active Substance: TRAMADOL
     Dosage: UNK, QD DOSAGE FORM UNSPECIFIED, FREQUENCY -1 IN 1 DAYS;
     Route: 065
  9. TRAMADOL [Suspect]
     Active Substance: TRAMADOL
     Dosage: 50 MILLIGRAM, TID
     Route: 065
     Dates: start: 200909, end: 201011
  10. TRAMADOL [Suspect]
     Active Substance: TRAMADOL
     Dosage: 400 MILLIGRAM PER DAY
     Route: 048
     Dates: start: 200910, end: 200911
  11. TRAMADOL [Suspect]
     Active Substance: TRAMADOL
     Dosage: 450 MILLIGRAM PER 1 MONTH
     Route: 048
     Dates: start: 200904, end: 200909
  12. TRAMADOL [Suspect]
     Active Substance: TRAMADOL
     Dosage: 450 MILLIGRAM, PER DAY, FREQUENCY -3 IN 1 DAYS 50 MG, 3/DAY
     Route: 048
     Dates: start: 200904, end: 200909
  13. TRAMADOL [Suspect]
     Active Substance: TRAMADOL
     Dosage: 150 MILLIGRAM, QD 50 MG (3 IN 1 DAYS 50 MG, 3/DAY)
     Route: 065
     Dates: start: 200904, end: 201009
  14. TRAMADOL [Suspect]
     Active Substance: TRAMADOL
     Dosage: 400 MILLIGRAM, QD (100 MG, 4/DAY)
     Route: 065
     Dates: start: 200910, end: 200911
  15. TRAMADOL [Suspect]
     Active Substance: TRAMADOL
     Dosage: 450 MILLIGRAM, QD (150 MG, TID (50 MG, 3/DAY))
     Route: 065
     Dates: start: 200904, end: 200909
  16. TRAMADOL [Suspect]
     Active Substance: TRAMADOL
     Dosage: 150 MILLIGRAM/PER DAY
     Route: 065
     Dates: start: 200909, end: 201011
  17. TRAMADOL [Suspect]
     Active Substance: TRAMADOL
     Dosage: 450 MILLIGRAM, QD (150 MG, TID (50 MG, 3/DAY))
     Route: 065
     Dates: start: 200904, end: 201009
  18. TRAMADOL [Suspect]
     Active Substance: TRAMADOL
     Dosage: 400 MILLIGRAM, QID, PER DAY
     Route: 065
     Dates: start: 200910, end: 200911
  19. METOCLOPRAMIDE [Suspect]
     Active Substance: METOCLOPRAMIDE
     Indication: Abdominal pain
     Dosage: 10 MG, TID (10 MG, 3/DAY) (TABLET)
     Route: 048
     Dates: start: 200907
  20. METOCLOPRAMIDE [Suspect]
     Active Substance: METOCLOPRAMIDE
     Indication: Vomiting
     Dosage: 10 MILLIGRAM, EVERY 8 HOURS, (10 MG, 3/DAY)
     Route: 065
  21. METOCLOPRAMIDE [Suspect]
     Active Substance: METOCLOPRAMIDE
     Indication: Nausea
     Dosage: 50 MILLIGRAM, QD
     Route: 048
  22. METOCLOPRAMIDE [Suspect]
     Active Substance: METOCLOPRAMIDE
     Dosage: 10 MILLIGRAM, EVERY 8 HOURS
     Route: 065
  23. METOCLOPRAMIDE [Suspect]
     Active Substance: METOCLOPRAMIDE
     Dosage: 30 MILLIGRAM,QD,PER DAY (TABLET)
     Route: 048
  24. METOCLOPRAMIDE [Suspect]
     Active Substance: METOCLOPRAMIDE
     Dosage: 50 MILLIGRAM,QD, PER DAY
     Route: 048
  25. METOCLOPRAMIDE [Suspect]
     Active Substance: METOCLOPRAMIDE
     Dosage: 30 MILLIGRAM,QD,PER DAY
     Route: 048
     Dates: start: 200907, end: 200907
  26. METOCLOPRAMIDE [Suspect]
     Active Substance: METOCLOPRAMIDE
     Dosage: 30 MILLIGRAM,QD,PER DAY
     Route: 065
  27. METOCLOPRAMIDE [Suspect]
     Active Substance: METOCLOPRAMIDE
     Dosage: 10 MG, TID,PER DAY, (30 MG/PER DAY, QD)
     Route: 065
  28. METOCLOPRAMIDE [Suspect]
     Active Substance: METOCLOPRAMIDE
     Dosage: 50 MILLIGRAM,QD, PER DAY
     Route: 065
  29. HYDROCORTISONE [Suspect]
     Active Substance: HYDROCORTISONE
     Indication: Product used for unknown indication
     Dosage: 150 MILLIGRAM, TID
     Route: 048
     Dates: start: 200904, end: 200909
  30. HYDROCORTISONE [Suspect]
     Active Substance: HYDROCORTISONE
     Dosage: 400 MILLIGRAM, QID
     Route: 065
     Dates: start: 200910, end: 200911
  31. HYDROCORTISONE [Suspect]
     Active Substance: HYDROCORTISONE
     Dosage: 450 MILLIGRAM, PER DAY (24 H)
     Route: 048
     Dates: start: 200904, end: 200909
  32. HYDROCORTISONE [Suspect]
     Active Substance: HYDROCORTISONE
     Dosage: 1600 MILLIGRAM, QD (400 MG, QID)
     Route: 048
     Dates: start: 200910, end: 200911
  33. HYDROCORTISONE [Suspect]
     Active Substance: HYDROCORTISONE
     Dosage: 450 MILLIGRAM, QD (150 MG, TID);
     Route: 048
     Dates: start: 200904, end: 200909
  34. HYDROCORTISONE [Suspect]
     Active Substance: HYDROCORTISONE
     Dosage: 1600 MILLIGRAM, PER DAY (400 MG, QID)
     Route: 048
     Dates: start: 200910, end: 200911
  35. HYDROCORTISONE [Suspect]
     Active Substance: HYDROCORTISONE
     Dosage: 400 MILLIGRAM, TID, (400 MG, 3/DAY)
     Route: 065
  36. PREGABALIN [Suspect]
     Active Substance: PREGABALIN
     Indication: Product used for unknown indication
     Dosage: UNK; DOSAGE FORM UNSPECIFIED, CAPSULE HARD
     Route: 065
  37. PREGABALIN [Suspect]
     Active Substance: PREGABALIN
     Dosage: UNK (CAPSULE)
     Route: 048
  38. GABAPENTIN [Suspect]
     Active Substance: GABAPENTIN
     Indication: Product used for unknown indication
     Dosage: 900 MILLIGRAM, QD
     Route: 048
  39. GABAPENTIN [Suspect]
     Active Substance: GABAPENTIN
     Dosage: 3600 MILLIGRAM, QD
     Route: 048
  40. GABAPENTIN [Suspect]
     Active Substance: GABAPENTIN
     Dosage: 900 MILLIGRAM, PER DAY
     Route: 065
  41. GABAPENTIN [Suspect]
     Active Substance: GABAPENTIN
     Dosage: 3600 MILLIGRAM, QD
     Route: 048
  42. GABAPENTIN [Suspect]
     Active Substance: GABAPENTIN
     Dosage: 900 MILLIGRAM, QDDOSAGE FORM: UNSPECIFIED
     Route: 065
  43. GABAPENTIN [Suspect]
     Active Substance: GABAPENTIN
     Dosage: 3600 MILLIGRAM PER DAY
     Route: 048
  44. GABAPENTIN [Suspect]
     Active Substance: GABAPENTIN
     Dosage: 900 MILLIGRAM PER DAY (CAPSULE)
     Route: 065
  45. AMITRIPTYLINE HYDROCHLORIDE [Suspect]
     Active Substance: AMITRIPTYLINE HYDROCHLORIDE
     Indication: Product used for unknown indication
     Dosage: 100 MILLIGRAM, AT BED TIME, DOSEFORM UNSPECIFIED
     Route: 048
  46. AMITRIPTYLINE HYDROCHLORIDE [Suspect]
     Active Substance: AMITRIPTYLINE HYDROCHLORIDE
     Dosage: 100 MILLIGRAM PER DAY
     Route: 048
  47. AMITRIPTYLINE HYDROCHLORIDE [Suspect]
     Active Substance: AMITRIPTYLINE HYDROCHLORIDE
     Dosage: 100 MILLIGRAM, ONCE DAILY (QD),AT NIGHT
     Route: 048
  48. AMITRIPTYLINE HYDROCHLORIDE [Suspect]
     Active Substance: AMITRIPTYLINE HYDROCHLORIDE
     Dosage: 100 MILLIGRAM PER DAY
     Route: 048
  49. AMITRIPTYLINE HYDROCHLORIDE [Suspect]
     Active Substance: AMITRIPTYLINE HYDROCHLORIDE
     Dosage: 100 MILLIGRAM, QD (AT NIGHT)
     Route: 048
  50. PRUCALOPRIDE [Suspect]
     Active Substance: PRUCALOPRIDE
     Indication: Product used for unknown indication
     Dosage: 2 MILLIGRAM, QD, ONCE DAILY, FILM-COATED TABLET
     Route: 048
  51. PRUCALOPRIDE [Suspect]
     Active Substance: PRUCALOPRIDE
     Dosage: 2 MILLIGRAM,PER DAY
     Route: 048
  52. COCODAMOL [Suspect]
     Active Substance: ACETAMINOPHEN\CODEINE PHOSPHATE
     Indication: Product used for unknown indication
     Dosage: 8 DOSAGE FORM QD; 30MG/500MG, EFFERVESCENT TABLET
     Route: 048
  53. COCODAMOL [Suspect]
     Active Substance: ACETAMINOPHEN\CODEINE PHOSPHATE
     Dosage: 8 MICROGRAM, UNKNOWN, 8 UG/L (30MG/500MG)
     Route: 048
  54. COCODAMOL [Suspect]
     Active Substance: ACETAMINOPHEN\CODEINE PHOSPHATE
     Dosage: 32 DOSAGE FORM, QD, (30MG/500MG, 8 DF, QID) EFFERVESCENT TABLET
     Route: 048
  55. COCODAMOL [Suspect]
     Active Substance: ACETAMINOPHEN\CODEINE PHOSPHATE
     Dosage: 32 DOSAGE FORM, QD, (30MG/500MG, 8 DF, QID) EFFERVESCENT TABLET
     Route: 048
  56. COCODAMOL [Suspect]
     Active Substance: ACETAMINOPHEN\CODEINE PHOSPHATE
     Dosage: 32 DOSAGE FORM PER DAY (CAPSULE) 8 DOSAGE FORM, QD, (30MG/500MG) (CO-CODAMOL);
     Route: 048
  57. COCODAMOL [Suspect]
     Active Substance: ACETAMINOPHEN\CODEINE PHOSPHATE
     Dosage: 8 DOSAGE FORM, DAILY, 30MG/500MG (CO-CODAMOL)
     Route: 048
  58. COCODAMOL [Suspect]
     Active Substance: ACETAMINOPHEN\CODEINE PHOSPHATE
     Dosage: 32 DOSAGE FORM, QD
     Route: 048
  59. COCODAMOL [Suspect]
     Active Substance: ACETAMINOPHEN\CODEINE PHOSPHATE
     Dosage: 32 DOSAGE FORM, PER DAY (EFFERVESCENT TABLET)
     Route: 065
  60. COCODAMOL [Suspect]
     Active Substance: ACETAMINOPHEN\CODEINE PHOSPHATE
     Dosage: 32 DOSAGE FORM, QID, ZAPAIN
     Route: 048
  61. COCODAMOL [Suspect]
     Active Substance: ACETAMINOPHEN\CODEINE PHOSPHATE
     Dosage: 8 DOSAGE FORM QD; (30MG/500MG) (CAPSULE) (CO-CODAMOL);
     Route: 048
  62. COCODAMOL [Suspect]
     Active Substance: ACETAMINOPHEN\CODEINE PHOSPHATE
     Dosage: 32 DOSAGE FORM, QD, 30MG/500MG, 8 DF, QID, TABLET
     Route: 048
  63. COCODAMOL [Suspect]
     Active Substance: ACETAMINOPHEN\CODEINE PHOSPHATE
     Dosage: 8 DOSAGE FORM, 1X/DAY:QD,30MG/500MG (ONCE DAILY),CAPSULE,ZAPAIN
     Route: 065
  64. COCODAMOL [Suspect]
     Active Substance: ACETAMINOPHEN\CODEINE PHOSPHATE
     Dosage: 530 MILLIGRAM,PER DAY,8 DOSAGE FORM, DAILY, 30MG/500MG, EFFERVESCENT TABLET
     Route: 048
  65. BETAHISTINE [Suspect]
     Active Substance: BETAHISTINE
     Indication: Product used for unknown indication
     Dosage: 24 MILLIGRAM, QD; (24 MG, 1X/DAY, DOSAGE FORM: UNSPECIFIED)
     Route: 048
  66. BETAHISTINE [Suspect]
     Active Substance: BETAHISTINE
     Dosage: 24 MILLIGRAM PER DAY (TABLET)
     Route: 048
  67. CYCLIZINE [Suspect]
     Active Substance: CYCLIZINE
     Indication: Vomiting
     Dosage: 50 MILLIGRAM PER DAY, DOSAGE FORM UNSPECIFIED (50 MG, 3/DAY, 8 DOSAGE FORM, 1X/DAY:QD);
     Route: 065
  68. CYCLIZINE [Suspect]
     Active Substance: CYCLIZINE
     Indication: Nausea
     Dosage: 50 MILLIGRAM, TID, DOSAGE FORM UNSPECIFIED
     Route: 065
  69. CYCLIZINE [Suspect]
     Active Substance: CYCLIZINE
     Dosage: UNK (DOSAGE FORM: UNSPECIFIED)
     Route: 065
  70. CYCLIZINE [Suspect]
     Active Substance: CYCLIZINE
     Dosage: 8 DOSAGE FORM, QD
     Route: 048
  71. CYCLIZINE [Suspect]
     Active Substance: CYCLIZINE
     Dosage: 150 DOSAGE FORM, QD 50 MG, 3/DAY
     Route: 065
  72. CYCLIZINE [Suspect]
     Active Substance: CYCLIZINE
     Dosage: 100 MILLIGRAM, TID
     Route: 065
  73. CYCLIZINE [Suspect]
     Active Substance: CYCLIZINE
     Dosage: 150 MILLIGRAM, PER DAY
     Route: 048
  74. CYCLIZINE [Suspect]
     Active Substance: CYCLIZINE
     Dosage: 50 MILLIGRAM, TID
     Route: 048
  75. CYCLIZINE [Suspect]
     Active Substance: CYCLIZINE
     Dosage: 300 MILLIGRAM PER DAY
     Route: 065
  76. CYCLIZINE [Suspect]
     Active Substance: CYCLIZINE
     Dosage: 8 DOSAGE FORM, QD, 8 DOSAGE FORM, 1X/DAY:QD;
     Route: 065
  77. CYCLIZINE [Suspect]
     Active Substance: CYCLIZINE
     Dosage: 50 MILLIGRAM
     Route: 065
  78. CYCLIZINE [Suspect]
     Active Substance: CYCLIZINE
     Dosage: 150 DOSAGE FORM, QD 50 MG, 3/DAY
     Route: 048
  79. CYCLIZINE [Suspect]
     Active Substance: CYCLIZINE
     Dosage: 300 MILLIGRAM
     Route: 065
  80. CYCLIZINE [Suspect]
     Active Substance: CYCLIZINE
     Dosage: 50 MILLIGRAM, TID,(50 MG, 3/DAY, 8 DOSAGE FORM, 1X/DAY:QD);
     Route: 065
  81. CYCLIZINE [Suspect]
     Active Substance: CYCLIZINE
     Dosage: 50 MG, QD, FREQUENCY - IN 1 DAYS 50,MILLIGRAM
     Route: 065
  82. LANSOPRAZOLE [Concomitant]
     Active Substance: LANSOPRAZOLE
     Indication: Product used for unknown indication
     Dosage: 60 MILLIGRAM, QD GASTRO-RESISTANT CAPSULE
     Route: 048
  83. LANSOPRAZOLE [Concomitant]
     Active Substance: LANSOPRAZOLE
     Dosage: 30 MILLIGRAM, BID, 90, GASTRO-RESISTANT CAPSULE
     Route: 048
  84. LANSOPRAZOLE [Concomitant]
     Active Substance: LANSOPRAZOLE
     Dosage: 60 MILLIGRAM PER DAY
     Route: 065
  85. LANSOPRAZOLE [Concomitant]
     Active Substance: LANSOPRAZOLE
     Dosage: 60 MILLIGRAM PER DAY (CAPSULE)
     Route: 048
  86. LANSOPRAZOLE [Concomitant]
     Active Substance: LANSOPRAZOLE
     Dosage: 30 MILLIGRAM, BID
     Route: 048
  87. LANSOPRAZOLE [Concomitant]
     Active Substance: LANSOPRAZOLE
     Dosage: 60 MILLIGRAM, BID,PER DAY,GASTRO-RESISTANT CAPSULE
     Route: 048
  88. OMEPRAZOLE [Concomitant]
     Active Substance: OMEPRAZOLE
     Indication: Dyspepsia
     Dosage: 40 MG, QD
     Route: 065
  89. OMEPRAZOLE [Concomitant]
     Active Substance: OMEPRAZOLE
     Dosage: 40 MG, QD, CAPSULE
     Route: 065
  90. OMEPRAZOLE [Concomitant]
     Active Substance: OMEPRAZOLE
     Dosage: UNK
     Route: 065
  91. OMEPRAZOLE [Concomitant]
     Active Substance: OMEPRAZOLE
     Dosage: 40 MILLIGRAM PER DAY,QD, 40 MILLIGRAM DAILY; FREQUENCY -1 IN 1 DAYS 40 MG, QD, TABLET
     Route: 065
  92. SUMATRIPTAN [Concomitant]
     Active Substance: SUMATRIPTAN
     Indication: Migraine
     Dosage: 50 MG/PER DAY, QD
     Route: 065
  93. SUMATRIPTAN [Concomitant]
     Active Substance: SUMATRIPTAN
     Dosage: 50 MILLIGRAM PER DAY
     Route: 065
  94. SUMATRIPTAN [Concomitant]
     Active Substance: SUMATRIPTAN
     Dosage: UNK
     Route: 065
  95. IBUPROFEN [Concomitant]
     Active Substance: IBUPROFEN
     Indication: Abdominal pain
     Dosage: 50 MILLIGRAM, EVERY 8 HRS
     Route: 065
  96. IBUPROFEN [Concomitant]
     Active Substance: IBUPROFEN
     Dosage: 400 MILLIGRAM, EVERY 8 HRS 1200 MILLIGRAM DAILY; FREQUENCY -3 IN 8 HOURS 400 MG, 3/DAY
     Route: 065
  97. IBUPROFEN [Concomitant]
     Active Substance: IBUPROFEN
     Dosage: UNK
     Route: 065
  98. IBUPROFEN [Concomitant]
     Active Substance: IBUPROFEN
     Dosage: 1200 MILLIGRAM, QD, PER DAY (OINTMENT )
     Route: 065

REACTIONS (12)
  - Pituitary tumour benign [Recovered/Resolved]
  - Adrenal insufficiency [Recovered/Resolved]
  - Secondary adrenocortical insufficiency [Recovered/Resolved]
  - Abdominal pain [Recovered/Resolved]
  - Vision blurred [Recovered/Resolved]
  - Lethargy [Recovered/Resolved]
  - Vomiting [Recovered/Resolved]
  - Dizziness [Recovered/Resolved]
  - Condition aggravated [Recovered/Resolved]
  - Hyperprolactinaemia [Recovered/Resolved]
  - Headache [Recovered/Resolved]
  - Drug ineffective [Unknown]

NARRATIVE: CASE EVENT DATE: 20091101
